FAERS Safety Report 20587053 (Version 1)
Quarter: 2022Q1

REPORT INFORMATION
  Report Type: Spontaneous
  Country: US (occurrence: US)
  Receive Date: 20220314
  Receipt Date: 20220314
  Transmission Date: 20220423
  Serious: Yes (Life-Threatening, Hospitalization, Other)
  Sender: FDA-Public Use
  Company Number: US-NOVOPROD-897833

PATIENT
  Age: 82 Year
  Sex: Male

DRUGS (3)
  1. LEVEMIR [Suspect]
     Active Substance: INSULIN DETEMIR
     Indication: Type 2 diabetes mellitus
     Dosage: UNK
     Route: 058
     Dates: start: 20120101
  2. NOVOLOG [Suspect]
     Active Substance: INSULIN ASPART
     Dosage: UNK (DOSE DECREASED)
     Route: 058
  3. NOVOLOG [Suspect]
     Active Substance: INSULIN ASPART
     Indication: Type 2 diabetes mellitus
     Dosage: 18 IU, QD
     Route: 058

REACTIONS (3)
  - Seizure [Not Recovered/Not Resolved]
  - Blood glucose increased [Recovered/Resolved]
  - Blood glucose fluctuation [Not Recovered/Not Resolved]

NARRATIVE: CASE EVENT DATE: 20170101
